FAERS Safety Report 26025983 (Version 1)
Quarter: 2025Q4

REPORT INFORMATION
  Report Type: Spontaneous
  Country: US (occurrence: None)
  Receive Date: 20251110
  Receipt Date: 20251110
  Transmission Date: 20260117
  Serious: Yes (Death)
  Sender: FDA-CTU
  Company Number: None

PATIENT
  Age: 57 Year
  Sex: Male

DRUGS (4)
  1. DEFENCATH [Suspect]
     Active Substance: HEPARIN\TAUROLIDINE
     Indication: Device related infection
     Dosage: OTHER FREQUENCY : EACH HEMODIALYSIS?OTHER ROUTE : CATHETER LOCK
     Route: 050
     Dates: start: 20251025, end: 20251029
  2. DEFENCATH [Suspect]
     Active Substance: HEPARIN\TAUROLIDINE
     Indication: Haematological infection
  3. DEFENCATH [Suspect]
     Active Substance: HEPARIN\TAUROLIDINE
     Indication: Infection prophylaxis
  4. DEVICE [Suspect]
     Active Substance: DEVICE

REACTIONS (7)
  - Device malfunction [None]
  - Hypoxia [None]
  - Pulmonary embolism [None]
  - Thrombosis [None]
  - Drug ineffective [None]
  - Pulse absent [None]
  - Sepsis [None]

NARRATIVE: CASE EVENT DATE: 20251029
